FAERS Safety Report 7099576-8 (Version None)
Quarter: 2010Q4

REPORT INFORMATION
  Report Type: 
  Country: None (occurrence: None)
  Receive Date: 20101105
  Receipt Date: 20101022
  Transmission Date: 20110411
  Serious: Yes (Hospitalization)
  Sender: FDA-Public Use
  Company Number: 1000017008

PATIENT
  Age: 84 Year
  Sex: Female

DRUGS (13)
  1. ESCITALOPRAM [Suspect]
     Indication: DEPRESSION
     Dosage: 10 MG (10 MG, 1 IN 1 D), ORAL
     Route: 048
     Dates: start: 20071027, end: 20100820
  2. OXYNORM (OXYCODONE HYDROCHLORIDE) (OXYCODONE HYDROCHLORIDE) [Concomitant]
     Indication: DEPRESSION
     Dosage: 10 MG (10 MG, 1 IN 1 D), ORAL
     Route: 048
     Dates: start: 20071027, end: 20100820
  3. OXYCONTIN  (OXYCODONE HYDROCHLORIDE) (OXYCODONE HYDROCHLORIDE) [Concomitant]
  4. OMEPRAZOL SANDOZ (OMEPRAZOLE) (OMEPRAZOLE) [Concomitant]
  5. MOVICOL  (NULYTELY)  (NULYTELY) [Concomitant]
  6. KALCIPOS FORTE (CALCIUM CARBONATE) (CALCIUM CARBONATE) [Concomitant]
  7. PREDNISOLON PFIZER (PREDNISOLONE) (PREDNISOLON) [Concomitant]
  8. NITROMEX  (GLYCERYL) [Concomitant]
  9. OPTIMOL (TIMOLOL MALEATE) TIMOLOL MALEATE) [Concomitant]
  10. INNOHEP (TINZAPARIN SODIUM) (TINZAPARIN SODIUM) [Concomitant]
  11. TROMBYL (ACETYLSALICYLIC ACID) (ACETYLSALICYLIC ACID) [Concomitant]
  12. ARTELAC (HYPROMELLOSE) (HYPROMELLOSE) [Concomitant]
  13. ZOPICLONE ACTAVIS (ZOLPICLONE) (ZOPICLONE) [Concomitant]

REACTIONS (9)
  - BLOOD ALKALINE PHOSPHATASE INCREASED [None]
  - CONFUSIONAL STATE [None]
  - FALL [None]
  - GAMMA-GLUTAMYLTRANSFERASE INCREASED [None]
  - HAEMOGLOBIN DECREASED [None]
  - LIVER FUNCTION TEST ABNORMAL [None]
  - SUBCUTANEOUS EMPHYSEMA [None]
  - TRANSAMINASES INCREASED [None]
  - URINARY TRACT INFECTION [None]
